FAERS Safety Report 9693182 (Version 1)
Quarter: 2013Q4

REPORT INFORMATION
  Report Type: Spontaneous
  Country: GB (occurrence: GB)
  Receive Date: 20131118
  Receipt Date: 20131118
  Transmission Date: 20140711
  Serious: Yes (Other)
  Sender: FDA-Public Use
  Company Number: GB-ELI_LILLY_AND_COMPANY-GB201311004315

PATIENT
  Age: 71 Year
  Sex: Male

DRUGS (1)
  1. OLANZAPINE [Suspect]
     Indication: SCHIZOPHRENIA
     Dosage: 2.5 MG, EACH EVENING
     Route: 048
     Dates: start: 2011

REACTIONS (10)
  - Pulmonary embolism [Recovering/Resolving]
  - Insomnia [Recovered/Resolved]
  - Weight decreased [Recovered/Resolved]
  - Balance disorder [Recovered/Resolved]
  - Abnormal dreams [Recovered/Resolved]
  - Respiratory depth decreased [Recovered/Resolved]
  - Nausea [Recovered/Resolved]
  - Hyperhidrosis [Recovered/Resolved]
  - Drug withdrawal syndrome [Recovered/Resolved]
  - Intentional drug misuse [Recovered/Resolved]
